FAERS Safety Report 9373624 (Version 1)
Quarter: 2013Q2

REPORT INFORMATION
  Report Type: Spontaneous
  Country: US (occurrence: US)
  Receive Date: 20130627
  Receipt Date: 20130627
  Transmission Date: 20140414
  Serious: No
  Sender: FDA-Public Use
  Company Number: US-TEVA-413905USA

PATIENT
  Age: 76 Year
  Sex: Male

DRUGS (1)
  1. PROAIR HFA [Suspect]
     Dosage: 2 INHALATIONS EVERY 4 HOURS AROUND THE CLOCK
     Dates: start: 20130530

REACTIONS (1)
  - Drug ineffective [Unknown]
